FAERS Safety Report 8432812-1 (Version None)
Quarter: 2012Q2

REPORT INFORMATION
  Report Type: 
  Country: None (occurrence: None)
  Receive Date: 20120323
  Receipt Date: 20111007
  Transmission Date: 20120825
  Serious: Yes (Hospitalization, Other)
  Sender: FDA-Public Use
  Company Number: 163-21880-11071196

PATIENT
  Age: 76 Year
  Sex: Female
  Weight: 64.9551 kg

DRUGS (5)
  1. ZOMETA [Concomitant]
  2. VELCADE [Suspect]
     Indication: MULTIPLE MYELOMA
     Dosage: IV
     Route: 042
     Dates: end: 20101215
  3. OXYGEN (OXYGEN) [Concomitant]
  4. DEXAMETHASONE [Concomitant]
  5. REVLIMID [Suspect]
     Indication: MULTIPLE MYELOMA
     Dosage: 10 MG, 1 IN 1 D, PO
     Route: 048
     Dates: start: 20110101

REACTIONS (4)
  - CELLULITIS [None]
  - FATIGUE [None]
  - DEEP VEIN THROMBOSIS [None]
  - BLOOD CREATININE INCREASED [None]
